FAERS Safety Report 8300179-5 (Version None)
Quarter: 2012Q1

REPORT INFORMATION
  Report Type: 
  Country: None (occurrence: None)
  Receive Date: 20120323
  Receipt Date: 20100330
  Transmission Date: 20120608
  Serious: Yes (Other)
  Sender: FDA-Public Use
  Company Number: PHHY2010US20508

PATIENT
  Age: 65 Year
  Sex: Female
  Weight: 59.8 kg

DRUGS (12)
  1. XOPENEX [Concomitant]
  2. FLECAINIDE ACETATE [Concomitant]
  3. TOBI [Suspect]
     Indication: BRONCHIECTASIS
     Dosage: 300 MG, DAILY, INHALATION
     Route: 055
     Dates: start: 20100316, end: 20100330
  4. ASPIRIN [Concomitant]
  5. MULTIVITAMINS (ASCORBIC ACID, ERGOCALCIFEROL, FOLIC ACID, NICOTINAMIDE [Concomitant]
  6. SYNTHROID [Concomitant]
  7. NIACIN [Concomitant]
  8. CALCIUM CARBONATE [Concomitant]
  9. VITAMIN D [Concomitant]
  10. FISH OIL (FISH OIL) [Concomitant]
  11. TIAZAC [Concomitant]
  12. COMBIVENT [Concomitant]

REACTIONS (4)
  - HEADACHE [None]
  - ABDOMINAL DISCOMFORT [None]
  - DRUG DOSE OMISSION [None]
  - BRONCHOSPASM [None]
